FAERS Safety Report 10424195 (Version 1)
Quarter: 2014Q3

REPORT INFORMATION
  Report Type: Report from Study
  Country: TW (occurrence: TW)
  Receive Date: 20140902
  Receipt Date: 20140902
  Transmission Date: 20150326
  Serious: Yes (Hospitalization)
  Sender: FDA-Public Use
  Company Number: TW-SA-2014SA114430

PATIENT
  Age: 44 Year
  Sex: Male

DRUGS (4)
  1. PLAVIX [Suspect]
     Active Substance: CLOPIDOGREL BISULFATE
     Indication: ACUTE CORONARY SYNDROME
     Route: 048
     Dates: start: 20140711
  2. BOKEY [Concomitant]
  3. KALIMATE [Concomitant]
     Active Substance: POLYSTYRENE SULFONIC ACID
  4. TRADJENTA [Concomitant]
     Active Substance: LINAGLIPTIN

REACTIONS (3)
  - Hypovolaemic shock [Unknown]
  - Blood pressure decreased [Unknown]
  - Dizziness [Recovered/Resolved]

NARRATIVE: CASE EVENT DATE: 20140731
